FAERS Safety Report 9283087 (Version 2)
Quarter: 2013Q3

REPORT INFORMATION
  Report Type: Spontaneous
  Country: DE (occurrence: DE)
  Receive Date: 20130510
  Receipt Date: 20130724
  Transmission Date: 20140515
  Serious: Yes (Other)
  Sender: FDA-Public Use
  Company Number: DE-JNJFOC-20130415623

PATIENT
  Age: 48 Year
  Sex: Male

DRUGS (1)
  1. XEPLION [Suspect]
     Indication: SCHIZOPHRENIA, PARANOID TYPE
     Route: 030
     Dates: start: 20121122

REACTIONS (6)
  - Rhabdomyolysis [Recovered/Resolved]
  - Prescribed overdose [Unknown]
  - Eyelid oedema [Recovered/Resolved]
  - Muscular weakness [Recovered/Resolved]
  - Blood creatine phosphokinase increased [Recovered/Resolved]
  - Myalgia [Recovered/Resolved]
